FAERS Safety Report 16289046 (Version 2)
Quarter: 2021Q1

REPORT INFORMATION
  Report Type: Other
  Country: CA (occurrence: CA)
  Receive Date: 20190509
  Receipt Date: 20210129
  Transmission Date: 20210419
  Serious: Yes (Life-Threatening, Hospitalization, Other)
  Sender: FDA-Public Use
  Company Number: CA-APOTEX-2019AP013421

PATIENT
  Age: 69 Year
  Sex: Male
  Weight: 99 kg

DRUGS (4)
  1. APO?ROSUVASTATIN [Suspect]
     Active Substance: ROSUVASTATIN
     Indication: DIABETES MELLITUS
  2. APO?ROSUVASTATIN [Suspect]
     Active Substance: ROSUVASTATIN
     Indication: CORONARY ARTERY DISEASE
  3. APO?ROSUVASTATIN [Suspect]
     Active Substance: ROSUVASTATIN
     Indication: CEREBROVASCULAR ACCIDENT
  4. APO?ROSUVASTATIN [Suspect]
     Active Substance: ROSUVASTATIN
     Indication: DYSLIPIDAEMIA
     Dosage: 10 MG, QD
     Route: 048

REACTIONS (8)
  - Acute kidney injury [Recovering/Resolving]
  - Blood creatine phosphokinase increased [Recovering/Resolving]
  - Blood creatinine increased [Recovering/Resolving]
  - Sepsis [Recovering/Resolving]
  - Fall [Recovering/Resolving]
  - Rhabdomyolysis [Recovering/Resolving]
  - Malaise [Recovering/Resolving]
  - Asthenia [Recovering/Resolving]
